APPROVED DRUG PRODUCT: GEREF
Active Ingredient: SERMORELIN ACETATE
Strength: EQ 0.05MG BASE/AMP **Federal Register determination that product was not discontinued or withdrawn for safety or effectiveness reasons**
Dosage Form/Route: INJECTABLE;INJECTION
Application: N019863 | Product #001
Applicant: EMD SERONO INC
Approved: Dec 28, 1990 | RLD: Yes | RS: No | Type: DISCN